FAERS Safety Report 6311862-5 (Version None)
Quarter: 2009Q3

REPORT INFORMATION
  Report Type: 
  Country: None (occurrence: None)
  Receive Date: 20090817
  Receipt Date: 20090804
  Transmission Date: 20100115
  Serious: Yes (Disabling)
  Sender: FDA-Public Use
  Company Number: PR-MERCK-0805USA03578

PATIENT
  Age: 62 Year
  Sex: Female

DRUGS (5)
  1. FOSAMAX [Suspect]
     Indication: OSTEOPOROSIS
     Route: 048
     Dates: end: 20070401
  2. FOSAMAX [Suspect]
     Route: 048
     Dates: start: 19970404, end: 20000225
  3. FOSAMAX [Suspect]
     Route: 048
     Dates: start: 20000719, end: 20000816
  4. FOSAMAX [Suspect]
     Route: 048
     Dates: start: 20001129, end: 20060512
  5. FOSAMAX PLUS D [Suspect]
     Indication: OSTEOPOROSIS
     Route: 048
     Dates: start: 20050824, end: 20060101

REACTIONS (21)
  - BONE DISORDER [None]
  - BONE LESION [None]
  - BRONCHITIS [None]
  - DENTAL CARIES [None]
  - DIABETES MELLITUS [None]
  - DISCOMFORT [None]
  - DRUG HYPERSENSITIVITY [None]
  - EMOTIONAL DISORDER [None]
  - GINGIVAL BLEEDING [None]
  - HYSTERECTOMY [None]
  - IMPAIRED HEALING [None]
  - INAPPROPRIATE SCHEDULE OF DRUG ADMINISTRATION [None]
  - MULTIPLE INJURIES [None]
  - OSTEOMYELITIS [None]
  - OSTEONECROSIS [None]
  - OVERDOSE [None]
  - PAIN IN JAW [None]
  - PULPITIS DENTAL [None]
  - RESORPTION BONE INCREASED [None]
  - SOFT TISSUE INJURY [None]
  - TOOTH FRACTURE [None]
